FAERS Safety Report 21449111 (Version 1)
Quarter: 2022Q4

REPORT INFORMATION
  Report Type: Spontaneous
  Country: EG (occurrence: EG)
  Receive Date: 20221013
  Receipt Date: 20221013
  Transmission Date: 20230113
  Serious: Yes (Other)
  Sender: FDA-Public Use
  Company Number: EG-NOVOPROD-965755

PATIENT
  Age: 644 Month
  Sex: Male
  Weight: 90 kg

DRUGS (2)
  1. INSULIN HUMAN [Suspect]
     Active Substance: INSULIN HUMAN
     Indication: Diabetes mellitus
     Dosage: 55 IU, QD (30U MORNING; 25 U NIGHT)
     Route: 058
  2. BISOPROLOL FUMARATE [Concomitant]
     Active Substance: BISOPROLOL FUMARATE
     Indication: Cardiac disorder
     Dosage: 1 TABLET MORNING BEFORE MEALS ( STARTED FROM 20 DAYS )
     Route: 048

REACTIONS (1)
  - Thrombosis [Not Recovered/Not Resolved]
